FAERS Safety Report 19405128 (Version 1)
Quarter: 2021Q2

REPORT INFORMATION
  Report Type: Spontaneous
  Country: US (occurrence: US)
  Receive Date: 20210611
  Receipt Date: 20210611
  Transmission Date: 20210717
  Serious: Yes (Death)
  Sender: FDA-Public Use
  Company Number: None

PATIENT
  Age: 66 Year
  Sex: Male

DRUGS (19)
  1. DIPHEN/ATROP [Concomitant]
     Active Substance: ATROPINE SULFATE\DIPHENOXYLATE
     Dates: start: 20210204
  2. ENOXAPARIN [Concomitant]
     Active Substance: ENOXAPARIN
     Dates: start: 20210517
  3. LORAZEPAM. [Concomitant]
     Active Substance: LORAZEPAM
     Dates: start: 20201223
  4. PROCHOLORPERAZINE [Concomitant]
     Dates: start: 20201203
  5. PROMETHAZINE [Concomitant]
     Active Substance: PROMETHAZINE HYDROCHLORIDE
     Dates: start: 20200720
  6. AMOXICILLIN. [Concomitant]
     Active Substance: AMOXICILLIN
     Dates: start: 20210121
  7. CHLORHEX GLU SOL [Concomitant]
     Dates: start: 20210122
  8. MORPHINE SUL TAB [Concomitant]
     Dates: start: 20210122
  9. OMEPRAZOLE. [Concomitant]
     Active Substance: OMEPRAZOLE
     Dates: start: 20210402
  10. DEXAMETHASON [Concomitant]
     Active Substance: DEXAMETHASONE
     Dates: start: 20201203
  11. OLANZAPINE. [Concomitant]
     Active Substance: OLANZAPINE
     Dates: start: 20210421
  12. ATENOLOL. [Concomitant]
     Active Substance: ATENOLOL
     Dates: start: 20210414
  13. HYDROCODONE BITARTRATE AND ACETAMINOPHEN [Concomitant]
     Active Substance: ACETAMINOPHEN\HYDROCODONE BITARTRATE
     Dates: start: 20201016
  14. LEVOFLOXACIN. [Concomitant]
     Active Substance: LEVOFLOXACIN
  15. UDENYCA [Suspect]
     Active Substance: PEGFILGRASTIM-CBQV
     Indication: GASTRIC CANCER
     Route: 058
     Dates: start: 20201229, end: 20210526
  16. LOPERAMIDE [Concomitant]
     Active Substance: LOPERAMIDE
     Dates: start: 20210303
  17. POLYETH GLYC POW [Concomitant]
     Dates: start: 20210415
  18. PEG 3350 [Concomitant]
     Active Substance: POLYETHYLENE GLYCOL 3350
     Dates: start: 20201105
  19. VALSARTAN AND HYDROCHLOROTHIAZIDE [Concomitant]
     Active Substance: HYDROCHLOROTHIAZIDE\VALSARTAN
     Dates: start: 20200618

REACTIONS (1)
  - Death [None]

NARRATIVE: CASE EVENT DATE: 20210526
